FAERS Safety Report 8019829-6 (Version None)
Quarter: 2011Q4

REPORT INFORMATION
  Report Type: 
  Country: None (occurrence: None)
  Receive Date: 20111227
  Receipt Date: 20110923
  Transmission Date: 20120403
  Serious: Yes (Other)
  Sender: FDA-Public Use
  Company Number: 2011SP000507

PATIENT
  Age: 16 Year
  Sex: Male

DRUGS (5)
  1. ENALAPRIL MALEATE [Concomitant]
  2. MYCOPHENOLATE MOFETIL [Suspect]
     Indication: NEPHROTIC SYNDROME
     Dosage: 700-100 MG/M**2;QD;
  3. CYCLOSPORINE [Concomitant]
  4. LOSARTAN POTASSIUM [Concomitant]
  5. ATENOLOL [Concomitant]

REACTIONS (5)
  - PARAESTHESIA [None]
  - HYPOAESTHESIA [None]
  - MONOPARESIS [None]
  - VIITH NERVE PARALYSIS [None]
  - GLIOBLASTOMA MULTIFORME [None]
